FAERS Safety Report 6399370-7 (Version None)
Quarter: 2009Q4

REPORT INFORMATION
  Report Type: 
  Country: None (occurrence: None)
  Receive Date: 20091007
  Receipt Date: 20091007
  Transmission Date: 20100525
  Serious: No
  Sender: FDA-Public Use
  Company Number: None

PATIENT

DRUGS (2)
  1. PREDNISOLONE SODIUM PHOSPHATE [Suspect]
     Indication: HYPERSENSITIVITY
     Dosage: 3 AND 1/2CC OR ML TWICE DAILY PO
     Route: 048
     Dates: start: 20091003, end: 20091006
  2. PREDNISOLONE [Suspect]
     Indication: HYPERSENSITIVITY
     Dosage: 3 AND 1/2CC OR ML TWICE DAILY PO
     Route: 048
     Dates: start: 20091003, end: 20091003

REACTIONS (3)
  - DRUG DISPENSING ERROR [None]
  - MEDICATION ERROR [None]
  - PRODUCT LABEL ISSUE [None]
